FAERS Safety Report 8614450-0 (Version None)
Quarter: 2012Q3

REPORT INFORMATION
  Report Type: 
  Country: None (occurrence: None)
  Receive Date: 20120823
  Receipt Date: 20120817
  Transmission Date: 20120928
  Serious: Yes (Death)
  Sender: FDA-Public Use
  Company Number: PHHY2012PH072458

PATIENT

DRUGS (1)
  1. IMATINIB MESYLATE [Suspect]
     Dosage: 300 MG, UNK
     Dates: start: 20090508

REACTIONS (1)
  - DEATH [None]
